FAERS Safety Report 8816509 (Version 1)
Quarter: 2012Q4

REPORT INFORMATION
  Report Type: Spontaneous
  Country: ES (occurrence: None)
  Receive Date: 20120927
  Receipt Date: 20120927
  Transmission Date: 20130627
  Serious: Yes (Other)
  Sender: FDA-Public Use
  Company Number: 2012P1058595

PATIENT
  Age: 59 Year
  Sex: Female

DRUGS (1)
  1. CHLOROQUINE [Suspect]
     Dosage: 250 mg; 6XW

REACTIONS (11)
  - Fatigue [None]
  - Macular pigmentation [None]
  - Toxicity to various agents [None]
  - Scotoma [None]
  - Visual impairment [None]
  - Atrioventricular block complete [None]
  - Electrocardiogram QRS complex prolonged [None]
  - Pallor [None]
  - Cardiotoxicity [None]
  - Mitral valve disease [None]
  - Aortic valve disease [None]
